FAERS Safety Report 7380710-7 (Version None)
Quarter: 2011Q1

REPORT INFORMATION
  Report Type: 
  Country: None (occurrence: None)
  Receive Date: 20110329
  Receipt Date: 20110328
  Transmission Date: 20110831
  Serious: No
  Sender: FDA-Public Use
  Company Number: US-PFIZER INC-US-WYE-H13956610

PATIENT
  Sex: Female

DRUGS (9)
  1. TENORMIN [Concomitant]
  2. ZOLOFT [Suspect]
  3. ALPRAZOLAM [Suspect]
  4. VITAMIN B COMPLEX CAP [Concomitant]
  5. SIMVASTATIN [Concomitant]
  6. PREMARIN [Suspect]
     Dosage: UNKNOWN
     Route: 065
  7. ASPIRIN [Concomitant]
  8. CALCIUM PHOSPHATE/CALCIUM SODIUM LACTATE/ERGOCALCIFEROL [Concomitant]
  9. LEVOTHYROXINE [Concomitant]

REACTIONS (3)
  - INSOMNIA [None]
  - FEELINGS OF WORTHLESSNESS [None]
  - FEELING GUILTY [None]
